FAERS Safety Report 13376864 (Version 6)
Quarter: 2017Q2

REPORT INFORMATION
  Report Type: Report from Study
  Country: US (occurrence: US)
  Receive Date: 20170328
  Receipt Date: 20170601
  Transmission Date: 20170830
  Serious: Yes (Hospitalization, Other)
  Sender: FDA-Public Use
  Company Number: US-GILEAD-2017-0264068

PATIENT
  Age: 63 Year
  Sex: Female

DRUGS (6)
  1. SILDENAFIL CITRATE. [Concomitant]
     Active Substance: SILDENAFIL CITRATE
  2. WARFARIN [Concomitant]
     Active Substance: WARFARIN
  3. VELETRI [Concomitant]
     Active Substance: EPOPROSTENOL
  4. AMBRISENTAN [Suspect]
     Active Substance: AMBRISENTAN
     Indication: PRODUCT USED FOR UNKNOWN INDICATION
     Dosage: 10 MG, QD
     Route: 065
     Dates: start: 20130726
  5. FLOLAN [Suspect]
     Active Substance: EPOPROSTENOL SODIUM
     Indication: PRODUCT USED FOR UNKNOWN INDICATION
     Route: 065
  6. REVATIO [Concomitant]
     Active Substance: SILDENAFIL CITRATE

REACTIONS (14)
  - Diarrhoea [Recovering/Resolving]
  - Pain in jaw [Not Recovered/Not Resolved]
  - Thirst [Not Recovered/Not Resolved]
  - Right ventricular failure [Unknown]
  - Oxygen saturation decreased [Not Recovered/Not Resolved]
  - Dyspnoea exertional [Unknown]
  - Atrial flutter [Unknown]
  - Nervousness [Not Recovered/Not Resolved]
  - Tremor [Not Recovered/Not Resolved]
  - Dyspnoea [Not Recovered/Not Resolved]
  - Condition aggravated [Not Recovered/Not Resolved]
  - Headache [Recovering/Resolving]
  - Increased appetite [Not Recovered/Not Resolved]
  - Asthenia [Not Recovered/Not Resolved]
